FAERS Safety Report 17535496 (Version 2)
Quarter: 2020Q3

REPORT INFORMATION
  Report Type: Report from Study
  Country: None (occurrence: AT)
  Receive Date: 20200313
  Receipt Date: 20200706
  Transmission Date: 20201102
  Serious: Yes (Other)
  Sender: FDA-Public Use
  Company Number: AT-ABBVIE-20K-009-3317459-00

PATIENT
  Age: 33 Year
  Sex: Female

DRUGS (1)
  1. HUMIRA [Suspect]
     Active Substance: ADALIMUMAB
     Indication: COLITIS ULCERATIVE
     Route: 058
     Dates: start: 201807, end: 20200229

REACTIONS (1)
  - Cervical dysplasia [Not Recovered/Not Resolved]

NARRATIVE: CASE EVENT DATE: 20200205
